FAERS Safety Report 10094774 (Version 2)
Quarter: 2014Q2

REPORT INFORMATION
  Report Type: Spontaneous
  Country: US (occurrence: US)
  Receive Date: 20140422
  Receipt Date: 20140513
  Transmission Date: 20141212
  Serious: No
  Sender: FDA-Public Use
  Company Number: US-PFIZER INC-2014109858

PATIENT
  Age: 55 Year
  Sex: Female
  Weight: 86.17 kg

DRUGS (18)
  1. CELEBREX [Suspect]
     Indication: RHEUMATOID ARTHRITIS
     Dosage: 200 MG, 2X/DAY
     Route: 048
     Dates: end: 201403
  2. ZYRTEC [Suspect]
     Dosage: UNK
  3. PLAQUENIL [Concomitant]
     Indication: SYSTEMIC LUPUS ERYTHEMATOSUS
     Dosage: 200 MG, 2X/DAY
  4. CYMBALTA [Concomitant]
     Indication: FIBROMYALGIA
     Dosage: 60 MG, 3X/DAY
  5. ROBAXIN [Concomitant]
     Indication: FIBROMYALGIA
     Dosage: 500 MG, 2X/DAY
  6. SYNTHROID [Concomitant]
     Indication: THYROID DISORDER
     Dosage: 125 UG, DAILY
  7. ULTRAM [Concomitant]
     Indication: PAIN
     Dosage: 50 MG, AS NEEDED
  8. AMBIEN [Concomitant]
     Indication: SLEEP DISORDER
     Dosage: 10 MG, DAILY
  9. KLOR-CON [Concomitant]
     Indication: HYPOKALAEMIA
     Dosage: 10 MG, DAILY
  10. DYAZIDE [Concomitant]
     Indication: ARTHRITIS
     Dosage: 37.5 MG, DAILY
  11. TRIAMTERENE [Concomitant]
     Dosage: (37.5 1X/DAILY)
  12. FAMOTIDINE [Concomitant]
     Dosage: (20, 2XDAILY)
  13. TRAMADOL [Concomitant]
     Dosage: (50,  2XDAILY)
  14. HYDROCODONE [Concomitant]
     Dosage: (325-7.5, 12 HRS AS NEEDED)
  15. VITAMIN D3 [Concomitant]
     Dosage: 5000 IU, 1X/DAY
  16. BLACK COHOSH [Concomitant]
     Dosage: 540 MG, 1X/DAY
  17. CALCIUM [Concomitant]
     Dosage: (1200, 1 DAILY)
  18. BENADRYL [Concomitant]
     Dosage: (25, 1 DAILY)

REACTIONS (1)
  - Hot flush [Not Recovered/Not Resolved]
